FAERS Safety Report 24583956 (Version 1)
Quarter: 2024Q4

REPORT INFORMATION
  Report Type: Spontaneous
  Country: IT (occurrence: IT)
  Receive Date: 20241106
  Receipt Date: 20241106
  Transmission Date: 20250115
  Serious: Yes (Other)
  Sender: AMGEN
  Company Number: None

PATIENT
  Age: 76 Year
  Sex: Male

DRUGS (4)
  1. PANITUMUMAB [Suspect]
     Active Substance: PANITUMUMAB
     Indication: Colon cancer
     Dosage: 408 MILLIGRAM, EVERY 14 DAYS
     Route: 040
     Dates: start: 20240911
  2. OXALIPLATIN [Suspect]
     Active Substance: OXALIPLATIN
     Indication: Colon cancer
     Dosage: 119.68 MILLIGRAM, EVERY 14 DAYS
     Route: 040
     Dates: start: 20240911
  3. FLUOROURACIL [Suspect]
     Active Substance: FLUOROURACIL
     Indication: Colon cancer
     Dosage: 563.2 MILLIGRAM, EVERY 14 DAYS
     Route: 040
     Dates: start: 20240911, end: 20240911
  4. FLUOROURACIL [Suspect]
     Active Substance: FLUOROURACIL
     Dosage: 3379.2 MILLIGRAM, EVERY 14 DAYS
     Route: 040
     Dates: start: 20240911

REACTIONS (3)
  - Thrombocytopenia [Recovered/Resolved]
  - Skin fissures [Recovering/Resolving]
  - Rash erythematous [Recovering/Resolving]

NARRATIVE: CASE EVENT DATE: 20240915
